FAERS Safety Report 8023774-X (Version None)
Quarter: 2012Q1

REPORT INFORMATION
  Report Type: 
  Country: None (occurrence: None)
  Receive Date: 20120103
  Receipt Date: 20120103
  Transmission Date: 20120608
  Serious: Yes (Hospitalization)
  Sender: FDA-Public Use
  Company Number: None

PATIENT
  Age: 55 Year
  Sex: Male
  Weight: 94.9 kg

DRUGS (1)
  1. ROPINIROLE [Suspect]
     Indication: PARKINSON'S DISEASE
     Dosage: MG PO
     Route: 048
     Dates: start: 20111111, end: 20111215

REACTIONS (5)
  - ABNORMAL DREAMS [None]
  - ALCOHOL USE [None]
  - CONFUSIONAL STATE [None]
  - INSOMNIA [None]
  - HALLUCINATION, VISUAL [None]
